FAERS Safety Report 10252251 (Version 1)
Quarter: 2014Q2

REPORT INFORMATION
  Report Type: Spontaneous
  Country: US (occurrence: US)
  Receive Date: 20140623
  Receipt Date: 20140623
  Transmission Date: 20141212
  Serious: Yes (Death, Other)
  Sender: FDA-Public Use
  Company Number: US-JNJFOC-20140607975

PATIENT
  Sex: 0

DRUGS (10)
  1. DOXORUBICIN HYDROCHLORIDE [Suspect]
     Indication: CHRONIC MYELOID LEUKAEMIA
     Route: 042
  2. DOXORUBICIN HYDROCHLORIDE [Suspect]
     Indication: ACUTE LYMPHOCYTIC LEUKAEMIA
     Route: 042
  3. CYCLOPHOSPHAMIDE [Suspect]
     Indication: CHRONIC MYELOID LEUKAEMIA
     Route: 065
  4. CYCLOPHOSPHAMIDE [Suspect]
     Indication: ACUTE LYMPHOCYTIC LEUKAEMIA
     Route: 065
  5. VINCRISTINE [Suspect]
     Indication: CHRONIC MYELOID LEUKAEMIA
     Route: 065
  6. VINCRISTINE [Suspect]
     Indication: ACUTE LYMPHOCYTIC LEUKAEMIA
     Route: 065
  7. DEXAMETHASONE [Suspect]
     Indication: CHRONIC MYELOID LEUKAEMIA
     Route: 065
  8. DEXAMETHASONE [Suspect]
     Indication: ACUTE LYMPHOCYTIC LEUKAEMIA
     Route: 065
  9. DASATINIB [Suspect]
     Indication: CHRONIC MYELOID LEUKAEMIA
     Route: 065
  10. DASATINIB [Suspect]
     Indication: ACUTE LYMPHOCYTIC LEUKAEMIA
     Route: 065

REACTIONS (7)
  - Death [Fatal]
  - Disease progression [Unknown]
  - Haemorrhage [Unknown]
  - Pleural effusion [Unknown]
  - Pericardial effusion [Unknown]
  - Infection [Unknown]
  - Off label use [Unknown]
